FAERS Safety Report 19072137 (Version 2)
Quarter: 2021Q4

REPORT INFORMATION
  Report Type: Report from Study
  Country: DE (occurrence: DE)
  Receive Date: 20210330
  Receipt Date: 20211013
  Transmission Date: 20220303
  Serious: Yes (Hospitalization)
  Sender: FDA-Public Use
  Company Number: NVSC2020DE260088

PATIENT
  Age: 68 Year
  Sex: Female
  Weight: 68 kg

DRUGS (12)
  1. RIBOCICLIB [Suspect]
     Active Substance: RIBOCICLIB
     Indication: Hormone receptor positive HER2 negative breast cancer
     Dosage: 600 MG
     Route: 048
     Dates: start: 20190924
  2. LETROZOLE [Suspect]
     Active Substance: LETROZOLE
     Indication: Hormone receptor positive HER2 negative breast cancer
     Dosage: 2.5 MG, QD (DAILY)
     Route: 048
     Dates: start: 20190924
  3. BIOTIN [Concomitant]
     Active Substance: BIOTIN
     Indication: Alopecia
     Dosage: UNK
     Route: 065
     Dates: start: 20200508
  4. ALBUTEROL [Concomitant]
     Active Substance: ALBUTEROL
     Indication: Asthma
     Dosage: UNK
     Route: 065
     Dates: start: 20190711
  5. CHOLECALCIFEROL [Concomitant]
     Active Substance: CHOLECALCIFEROL
     Indication: Vitamin supplementation
     Dosage: UNK
     Route: 065
     Dates: start: 20190919
  6. PANTOPRAZOLE SODIUM [Concomitant]
     Active Substance: PANTOPRAZOLE SODIUM
     Indication: Gastritis
     Dosage: UNK
     Route: 065
     Dates: start: 20191215
  7. VITAMIN B12 [Concomitant]
     Active Substance: CYANOCOBALAMIN
     Indication: Vitamin supplementation
     Dosage: UNK
     Route: 065
     Dates: start: 20190924
  8. PANTHENOL [Concomitant]
     Active Substance: PANTHENOL
     Indication: Stomatitis
     Dosage: UNK
     Route: 065
     Dates: start: 20200211
  9. ZOMETA [Concomitant]
     Active Substance: ZOLEDRONIC ACID
     Indication: Prophylaxis
     Dosage: UNK
     Route: 065
     Dates: start: 20200317
  10. VITROCAP [Concomitant]
     Indication: Vitreous opacities
     Dosage: UNK
     Route: 065
     Dates: start: 20200317
  11. ALVESCO [Concomitant]
     Active Substance: CICLESONIDE
     Indication: Asthma
     Dosage: UNK
     Route: 065
     Dates: start: 19990101
  12. ATROVENT [Concomitant]
     Active Substance: IPRATROPIUM BROMIDE
     Indication: Asthma
     Dosage: UNK
     Route: 065
     Dates: start: 20190711

REACTIONS (1)
  - Interstitial lung disease [Not Recovered/Not Resolved]

NARRATIVE: CASE EVENT DATE: 20200915
